FAERS Safety Report 19378353 (Version 3)
Quarter: 2023Q2

REPORT INFORMATION
  Report Type: Spontaneous
  Country: US (occurrence: US)
  Receive Date: 20210605
  Receipt Date: 20230508
  Transmission Date: 20230721
  Serious: Yes (Other)
  Sender: FDA-Public Use
  Company Number: US-AMGEN-USASP2021082454

PATIENT
  Age: 50 Year
  Sex: Female

DRUGS (1)
  1. INFLIXIMAB [Suspect]
     Active Substance: INFLIXIMAB
     Indication: Granuloma
     Dosage: UNK
     Route: 065

REACTIONS (5)
  - Necrotising panniculitis [Recovering/Resolving]
  - Disseminated mycobacterium avium complex infection [Recovering/Resolving]
  - GATA2 deficiency [Unknown]
  - Blood immunoglobulin G increased [Unknown]
  - Off label use [Unknown]
